FAERS Safety Report 17326690 (Version 1)
Quarter: 2020Q1

REPORT INFORMATION
  Report Type: Spontaneous
  Country: GB (occurrence: GB)
  Receive Date: 20200127
  Receipt Date: 20200127
  Transmission Date: 20200409
  Serious: Yes (Other)
  Sender: FDA-Public Use
  Company Number: GB-MYLANLABS-2020M1008200

PATIENT
  Age: 65 Year
  Sex: Female

DRUGS (5)
  1. IRESSA [Suspect]
     Active Substance: GEFITINIB
     Indication: PRODUCT USED FOR UNKNOWN INDICATION
     Dosage: UNK UNK, QD
     Route: 048
  2. CLOPIDOGREL [Concomitant]
     Active Substance: CLOPIDOGREL BISULFATE
     Dosage: UNK
  3. LANSOPRAZOLE. [Concomitant]
     Active Substance: LANSOPRAZOLE
     Dosage: UNK
  4. OMEPRAZOLE. [Suspect]
     Active Substance: OMEPRAZOLE
     Indication: PRODUCT USED FOR UNKNOWN INDICATION
     Dosage: UNK
     Route: 048
  5. IRESSA [Suspect]
     Active Substance: GEFITINIB
     Dosage: QOD, EVERY SECOND DAY AS PER INSTRUCTIONS FROM MY ONCOLOGIST
     Route: 048

REACTIONS (9)
  - Haemorrhage [Unknown]
  - Cardiac arrest [Unknown]
  - Insomnia [Unknown]
  - Anxiety [Unknown]
  - Product use issue [Unknown]
  - Alopecia [Unknown]
  - Cerebrovascular accident [Unknown]
  - Irritable bowel syndrome [Unknown]
  - Off label use [Unknown]
